FAERS Safety Report 9412219 (Version 3)
Quarter: 2013Q3

REPORT INFORMATION
  Report Type: Spontaneous
  Country: GB (occurrence: GB)
  Receive Date: 20130722
  Receipt Date: 20130826
  Transmission Date: 20140515
  Serious: Yes (Hospitalization)
  Sender: FDA-Public Use
  Company Number: GB-PFIZER INC-2013207259

PATIENT
  Age: 34 Year
  Sex: Male

DRUGS (1)
  1. CRIZOTINIB [Suspect]
     Route: 048

REACTIONS (1)
  - Tonsillitis [Recovered/Resolved]
